FAERS Safety Report 4804202-1 (Version None)
Quarter: 2005Q4

REPORT INFORMATION
  Report Type: 
  Country: None (occurrence: None)
  Receive Date: 20051017
  Receipt Date: 20051003
  Transmission Date: 20060501
  Serious: Yes (Death)
  Sender: FDA-Public Use
  Company Number: B0395801A

PATIENT
  Age: 49 Year

DRUGS (4)
  1. WELLBUTRIN SR [Suspect]
  2. CARBON MONOXIDE (CARBON MONOXIDE) [Suspect]
  3. PARACETAMOL + CODEINE (ACETAMINOPHEN + CODEINE) [Suspect]
  4. UNKNOWN (FORMULATION UNKNOWN) (UNKNOWN) [Suspect]

REACTIONS (3)
  - BLOOD CARBON MONOXIDE INCREASED [None]
  - CARDIO-RESPIRATORY ARREST [None]
  - COMPLETED SUICIDE [None]
